FAERS Safety Report 17001369 (Version 1)
Quarter: 2019Q4

REPORT INFORMATION
  Report Type: Report from Study
  Country: US (occurrence: US)
  Receive Date: 20191106
  Receipt Date: 20191106
  Transmission Date: 20200122
  Serious: Yes (Hospitalization, Other)
  Sender: FDA-Public Use
  Company Number: US-TAKEDA-2018TUS021432

PATIENT
  Age: 74 Year
  Sex: Male

DRUGS (9)
  1. ACYCLOVIR                          /00587301/ [Concomitant]
     Active Substance: ACYCLOVIR
  2. DAPSONE. [Concomitant]
     Active Substance: DAPSONE
  3. FINASTERIDE. [Concomitant]
     Active Substance: FINASTERIDE
  4. PONATINIB [Suspect]
     Active Substance: PONATINIB
     Indication: ACUTE LYMPHOCYTIC LEUKAEMIA
     Dosage: 30 MILLIGRAM, QD
     Route: 048
     Dates: start: 201707
  5. AMLODIPINE BESYLATE. [Concomitant]
     Active Substance: AMLODIPINE BESYLATE
  6. TAMSULOSIN HCL [Concomitant]
     Active Substance: TAMSULOSIN HYDROCHLORIDE
  7. PONATINIB [Suspect]
     Active Substance: PONATINIB
     Dosage: 15 MILLIGRAM, QD
     Route: 048
  8. ASPIRIN                            /00002701/ [Concomitant]
     Active Substance: ASPIRIN
  9. RESTASIS [Concomitant]
     Active Substance: CYCLOSPORINE

REACTIONS (10)
  - Pneumonia [Unknown]
  - Corneal erosion [Unknown]
  - Sluggishness [Unknown]
  - Acute lymphocytic leukaemia [Unknown]
  - Hypersomnia [Unknown]
  - Fatigue [Unknown]
  - Hypoacusis [Unknown]
  - Abulia [Unknown]
  - Pain in extremity [Unknown]
  - Cough [Unknown]

NARRATIVE: CASE EVENT DATE: 201807
